FAERS Safety Report 8858380 (Version 1)
Quarter: 2012Q4

REPORT INFORMATION
  Report Type: 
  Country: US (occurrence: US)
  Receive Date: 20121024
  Receipt Date: 20121024
  Transmission Date: 20130627
  Serious: No
  Sender: FDA-Public Use
  Company Number: US-AMGEN-USASP2012000929

PATIENT
  Age: 61 Year
  Sex: Female

DRUGS (2)
  1. ENBREL [Suspect]
     Indication: RHEUMATOID ARTHRITIS
     Dosage: 50 mg, qwk
  2. KEFLEX                             /00145501/ [Concomitant]

REACTIONS (5)
  - Musculoskeletal pain [Unknown]
  - Wound [Unknown]
  - Arthralgia [Unknown]
  - Joint swelling [Unknown]
  - Headache [Unknown]
